FAERS Safety Report 5906588-3 (Version None)
Quarter: 2008Q4

REPORT INFORMATION
  Report Type: 
  Country: None (occurrence: None)
  Receive Date: 20081002
  Receipt Date: 20080924
  Transmission Date: 20090506
  Serious: No
  Sender: FDA-Public Use
  Company Number: US-ELI_LILLY_AND_COMPANY-US200808001447

PATIENT
  Sex: Female
  Weight: 126.98 kg

DRUGS (5)
  1. BYETTA [Suspect]
     Indication: TYPE 2 DIABETES MELLITUS
     Dosage: 5 UG, 2/D
     Route: 058
     Dates: start: 20080601, end: 20080701
  2. BYETTA [Suspect]
     Dosage: 10 UG, 2/D
     Route: 058
     Dates: start: 20080701
  3. HUMULIN N [Concomitant]
     Dosage: UNK, UNKNOWN
  4. HUMULIN R [Concomitant]
     Dosage: 50 U, UNKNOWN
     Dates: end: 20080101
  5. HUMULIN R [Concomitant]
     Dosage: 20 U, UNKNOWN
     Dates: start: 20080101

REACTIONS (9)
  - AMNESIA [None]
  - BLOOD GLUCOSE DECREASED [None]
  - BLOOD GLUCOSE INCREASED [None]
  - CYANOSIS [None]
  - DECREASED APPETITE [None]
  - DRUG INEFFECTIVE [None]
  - FEELING ABNORMAL [None]
  - HYPOAESTHESIA ORAL [None]
  - NAUSEA [None]
